FAERS Safety Report 13523763 (Version 2)
Quarter: 2017Q2

REPORT INFORMATION
  Report Type: Spontaneous
  Country: NL (occurrence: NL)
  Receive Date: 20170508
  Receipt Date: 20170516
  Transmission Date: 20170830
  Serious: Yes (Hospitalization)
  Sender: FDA-Public Use
  Company Number: NL-BAUSCH-BL-2017-013603

PATIENT
  Age: 70 Year
  Sex: Female
  Weight: 90 kg

DRUGS (4)
  1. ELIQUIS [Concomitant]
     Active Substance: APIXABAN
     Indication: PRODUCT USED FOR UNKNOWN INDICATION
     Route: 065
  2. ZYCLARA [Suspect]
     Active Substance: IMIQUIMOD
     Indication: SKIN DISORDER
     Route: 061
     Dates: start: 20170130, end: 20170201
  3. APOCARD [Concomitant]
     Active Substance: FLECAINIDE ACETATE
     Indication: PRODUCT USED FOR UNKNOWN INDICATION
     Route: 065
  4. EUTIROX 25 [Concomitant]
     Indication: PRODUCT USED FOR UNKNOWN INDICATION
     Route: 065

REACTIONS (5)
  - Leukopenia [Not Recovered/Not Resolved]
  - Hypertension [Unknown]
  - Palpitations [Unknown]
  - Toxicity to various agents [Unknown]
  - Insomnia [Unknown]

NARRATIVE: CASE EVENT DATE: 201701
